FAERS Safety Report 7956023-9 (Version None)
Quarter: 2011Q4

REPORT INFORMATION
  Report Type: 
  Country: None (occurrence: None)
  Receive Date: 20111205
  Receipt Date: 20111129
  Transmission Date: 20120403
  Serious: No
  Sender: FDA-Public Use
  Company Number: US-PFIZER INC-2011293074

PATIENT
  Sex: Male
  Weight: 88.435 kg

DRUGS (8)
  1. TIKOSYN [Suspect]
     Indication: ATRIAL FIBRILLATION
     Dosage: 500 UG, 2X/DAY
     Dates: start: 20111012
  2. LISINOPRIL [Concomitant]
     Indication: MYOCARDIAL INFARCTION
     Dosage: 5 MG, DAILY
     Dates: start: 20101001
  3. LIPITOR [Concomitant]
     Indication: MYOCARDIAL INFARCTION
     Dosage: 80 MG, DAILY
     Dates: start: 20101001
  4. TIKOSYN [Suspect]
     Dosage: 325 UG, 2X/DAY
     Dates: start: 20110101
  5. TIKOSYN [Suspect]
     Dosage: 250 UG, DAILY
     Dates: start: 20110101
  6. SOTALOL HCL [Suspect]
     Indication: ATRIAL FIBRILLATION
     Dosage: 80 MG, DAILY
     Dates: start: 20101101, end: 20110501
  7. DRONEDARONE HCL [Suspect]
     Indication: ATRIAL FIBRILLATION
     Dosage: UNK, 2X/DAY
     Dates: start: 20110501, end: 20111004
  8. METOPROLOL [Concomitant]
     Indication: MYOCARDIAL INFARCTION
     Dosage: 50 MG, 2X/DAY
     Dates: start: 20101001

REACTIONS (2)
  - DRUG INTOLERANCE [None]
  - DRUG INEFFECTIVE [None]
